FAERS Safety Report 12180191 (Version 3)
Quarter: 2016Q2

REPORT INFORMATION
  Report Type: Spontaneous
  Country: US (occurrence: US)
  Receive Date: 20160315
  Receipt Date: 20160407
  Transmission Date: 20160815
  Serious: Yes (Hospitalization)
  Sender: FDA-Public Use
  Company Number: US-BAYER-2016-049596

PATIENT
  Age: 29 Year
  Sex: Female

DRUGS (3)
  1. HELIXATE FS [Suspect]
     Active Substance: ANTIHEMOPHILIC FACTOR, HUMAN RECOMBINANT
     Indication: FACTOR VIII DEFICIENCY
     Dosage: 180 IU, NORMAL TREATMENT REGIMENT IS 1800
     Dates: start: 20160310
  2. HELIXATE FS [Suspect]
     Active Substance: ANTIHEMOPHILIC FACTOR, HUMAN RECOMBINANT
     Indication: FACTOR VIII DEFICIENCY
     Dosage: 180 IU, NORMAL TREATMENT REGIMENT IS 1800
     Dates: start: 20160310
  3. PROAIR HFA [Concomitant]
     Active Substance: ALBUTEROL SULFATE
     Indication: ASTHMA

REACTIONS (6)
  - Swollen tongue [Unknown]
  - Pharyngeal oedema [Unknown]
  - Panic attack [Unknown]
  - Lip swelling [Unknown]
  - Hypersensitivity [Unknown]
  - Generalised erythema [Unknown]

NARRATIVE: CASE EVENT DATE: 20160310
